FAERS Safety Report 7636239-1 (Version None)
Quarter: 2011Q3

REPORT INFORMATION
  Report Type: 
  Country: None (occurrence: None)
  Receive Date: 20110722
  Receipt Date: 20110722
  Transmission Date: 20111222
  Serious: Yes (Other)
  Sender: FDA-Public Use
  Company Number: None

PATIENT
  Sex: Male

DRUGS (3)
  1. DOXYCYCLINE [Suspect]
     Dosage: 150 MG 1 PO QD
     Route: 048
     Dates: start: 20110111
  2. DOXYCYCLINE [Suspect]
     Dosage: 150 MG 1 PO QD
     Route: 048
     Dates: start: 20100820
  3. DOXYCYCLINE [Suspect]
     Dosage: 150 MG 1 PO QD
     Route: 048
     Dates: start: 20100604

REACTIONS (4)
  - TABLET PHYSICAL ISSUE [None]
  - PRODUCT SUBSTITUTION ISSUE [None]
  - WRONG TECHNIQUE IN DRUG USAGE PROCESS [None]
  - DYSPHAGIA [None]
